FAERS Safety Report 8583455-0 (Version None)
Quarter: 2012Q3

REPORT INFORMATION
  Report Type: 
  Country: None (occurrence: None)
  Receive Date: 20120809
  Receipt Date: 20120807
  Transmission Date: 20120928
  Serious: Yes (Hospitalization)
  Sender: FDA-Public Use
  Company Number: BR-ROCHE-731986

PATIENT
  Sex: Female
  Weight: 60 kg

DRUGS (10)
  1. PIROXICAM [Concomitant]
  2. PREDNISONE TAB [Concomitant]
  3. METOCLOPRAMIDE HYDROCHLORIDE [Concomitant]
  4. IBUPROFEN [Concomitant]
  5. METICORTEN [Concomitant]
  6. TRAMADOL HYDROCHLORIDE [Concomitant]
  7. ACTEMRA [Suspect]
     Indication: RHEUMATOID ARTHRITIS
     Route: 042
     Dates: start: 20100901, end: 20111001
  8. PHENERGAN [Concomitant]
  9. ROCALTROL [Concomitant]
  10. AMYTRIL [Concomitant]

REACTIONS (12)
  - NAUSEA [None]
  - JOINT SWELLING [None]
  - BURNING SENSATION [None]
  - CHEILITIS [None]
  - PAIN [None]
  - INCREASED BRONCHIAL SECRETION [None]
  - ARTHRALGIA [None]
  - ORAL DISCOMFORT [None]
  - FATIGUE [None]
  - PYREXIA [None]
  - URINARY TRACT INFECTION [None]
  - ASTHENIA [None]
